FAERS Safety Report 17393578 (Version 4)
Quarter: 2020Q2

REPORT INFORMATION
  Report Type: Spontaneous
  Country: US (occurrence: US)
  Receive Date: 20200208
  Receipt Date: 20200511
  Transmission Date: 20200713
  Serious: No
  Sender: FDA-Public Use
  Company Number: US-ASCEND THERAPEUTICS US, LLC-2080011

PATIENT
  Age: 55 Year
  Sex: Female
  Weight: 61.36 kg

DRUGS (5)
  1. ESTROGEL [Suspect]
     Active Substance: ESTRADIOL
     Route: 062
     Dates: start: 20200316, end: 20200330
  2. PROGESTERONE. [Concomitant]
     Active Substance: PROGESTERONE
     Route: 048
  3. ESTROGEL [Suspect]
     Active Substance: ESTRADIOL
     Indication: HOT FLUSH
     Route: 062
     Dates: start: 20191220
  4. ESTROGEL [Suspect]
     Active Substance: ESTRADIOL
     Route: 062
     Dates: start: 20200331
  5. IMVEXXY (ESTRADIOL), UNKNOWN?INDICATION FOR USE: HOT FLASHES [Concomitant]
     Route: 067

REACTIONS (4)
  - Vaginal haemorrhage [Recovered/Resolved with Sequelae]
  - Intrusive thoughts [Recovering/Resolving]
  - Weight increased [Unknown]
  - Insomnia [Not Recovered/Not Resolved]

NARRATIVE: CASE EVENT DATE: 20191220
